FAERS Safety Report 12384537 (Version 3)
Quarter: 2018Q3

REPORT INFORMATION
  Report Type: Spontaneous
  Country: FR (occurrence: FR)
  Receive Date: 20160519
  Receipt Date: 20180907
  Transmission Date: 20181010
  Serious: Yes (Hospitalization)
  Sender: FDA-Public Use
  Company Number: FR-MERCK KGAA-1052439

PATIENT
  Age: 68 Year
  Sex: Male

DRUGS (7)
  1. NOVOTHYROX [Suspect]
     Active Substance: LEVOTHYROXINE SODIUM
     Indication: HYPOTHYROIDISM
     Dates: start: 201407
  2. MICARDIS [Suspect]
     Active Substance: TELMISARTAN
     Dates: start: 2016
  3. OPDIVO [Suspect]
     Active Substance: NIVOLUMAB
     Dates: start: 201304
  4. DOLIPRANE [Concomitant]
     Active Substance: ACETAMINOPHEN
  5. HYDROCORTISONE. [Concomitant]
     Active Substance: HYDROCORTISONE
  6. LERCANIDIPINE [Concomitant]
     Active Substance: LERCANIDIPINE
  7. ALLOPURINOL. [Suspect]
     Active Substance: ALLOPURINOL

REACTIONS (1)
  - Eosinophilic granulomatosis with polyangiitis [Not Recovered/Not Resolved]

NARRATIVE: CASE EVENT DATE: 201601
